FAERS Safety Report 10508157 (Version 1)
Quarter: 2014Q4

REPORT INFORMATION
  Report Type: Spontaneous
  Country: IE (occurrence: IE)
  Receive Date: 20141009
  Receipt Date: 20141009
  Transmission Date: 20150528
  Serious: Yes (Other)
  Sender: FDA-Public Use
  Company Number: IE-ASTRAZENECA-2014SE73705

PATIENT
  Age: 72 Year
  Sex: Male

DRUGS (14)
  1. GELOFUSINE [Concomitant]
     Active Substance: GELATIN\SODIUM CHLORIDE
  2. VANCOMYCIN [Concomitant]
     Active Substance: VANCOMYCIN
  3. VENTOLIN [Concomitant]
     Active Substance: ALBUTEROL SULFATE
  4. OCTAPLAS [Concomitant]
     Active Substance: HUMAN PLASMA
  5. AUGMENTIN [Concomitant]
     Active Substance: AMOXICILLIN\CLAVULANATE POTASSIUM
  6. SODIUM LACTATE. [Concomitant]
     Active Substance: SODIUM LACTATE
     Dosage: GENERIC
  7. DIPRIVAN [Suspect]
     Active Substance: PROPOFOL
     Indication: SEDATIVE THERAPY
     Dosage: VARIABLE DOSE DEPENDANT ON LEVEL OF SEDATION
     Route: 042
     Dates: start: 20140511, end: 20140512
  8. SERETIDE [Concomitant]
     Active Substance: FLUTICASONE FUROATE\SALMETEROL XINAFOATE
     Dosage: 25/125 MCG
  9. LOSARTAN [Concomitant]
     Active Substance: LOSARTAN
     Dosage: GENERIC
  10. NOREPINEPHRINE [Concomitant]
     Active Substance: NOREPINEPHRINE\NOREPINEPHRINE BITARTRATE
  11. FIBRINOGEN [Concomitant]
     Active Substance: FIBRINOGEN HUMAN
  12. ADRENALINE [Concomitant]
     Active Substance: EPINEPHRINE
     Dosage: GENERIC
  13. REMIFENTANIL [Concomitant]
     Active Substance: REMIFENTANIL
  14. SPIRIVA [Concomitant]
     Active Substance: TIOTROPIUM BROMIDE MONOHYDRATE

REACTIONS (2)
  - Face oedema [Recovered/Resolved]
  - Lip oedema [Recovered/Resolved]

NARRATIVE: CASE EVENT DATE: 20140511
